FAERS Safety Report 16276304 (Version 1)
Quarter: 2019Q2

REPORT INFORMATION
  Report Type: Spontaneous
  Country: US (occurrence: US)
  Receive Date: 20190401
  Receipt Date: 20190401
  Transmission Date: 20190711
  Serious: Yes (Other)
  Sender: FDA-Public Use
  Company Number: None

PATIENT
  Age: 68 Year
  Sex: Male
  Weight: 90.72 kg

DRUGS (11)
  1. FINESTERIDE [Concomitant]
     Active Substance: FINASTERIDE
  2. MULTI-VITAMIN [Concomitant]
     Active Substance: .ALPHA.-TOCOPHEROL ACETATE, DL-\ASCORBIC ACID\CYANOCOBALAMIN\FLUORIDE ION\FOLIC ACID\NIACIN\PYRIDOXINE\RIBOFLAVIN\THIAMINE\VITAMIN A\VITAMIN D
  3. SILDENAFIL. [Concomitant]
     Active Substance: SILDENAFIL
  4. XARELTO [Concomitant]
     Active Substance: RIVAROXABAN
  5. ATORVASTATIN [Concomitant]
     Active Substance: ATORVASTATIN
  6. RANATADINE [Concomitant]
  7. TAMULOSIN [Concomitant]
     Active Substance: TAMSULOSIN
  8. KEFLEX [Concomitant]
     Active Substance: CEPHALEXIN
  9. ATORVASTATIN 40MG [Suspect]
     Active Substance: ATORVASTATIN
     Indication: LOW DENSITY LIPOPROTEIN
     Dosage: ?          QUANTITY:40 MG MILLIGRAM(S);?
     Route: 048
     Dates: start: 20190119
  10. ATORVASTATIN 40MG [Suspect]
     Active Substance: ATORVASTATIN
     Indication: WEIGHT DECREASED
     Dosage: ?          QUANTITY:40 MG MILLIGRAM(S);?
     Route: 048
     Dates: start: 20190119
  11. MULTI-VITAMIN ONE A DAY SENIOR 55+ [Concomitant]

REACTIONS (1)
  - Pruritus [None]
